FAERS Safety Report 5728290-3 (Version None)
Quarter: 2008Q2

REPORT INFORMATION
  Report Type: 
  Country: None (occurrence: None)
  Receive Date: 20080430
  Receipt Date: 20080417
  Transmission Date: 20081010
  Serious: Yes (Death)
  Sender: FDA-Public Use
  Company Number: 2007S1004268

PATIENT
  Age: 19 Year
  Sex: Female

DRUGS (7)
  1. MERCAPTINE BITARTRATE (MERCAPTAMINE BITARTRATE) (150 MG) [Suspect]
     Indication: CYSTINOSIS
     Dosage: 300 MG;3 TIMES A DAY; ORAL
     Route: 048
     Dates: start: 19960116
  2. PREDNISOLONE [Concomitant]
  3. LEVOTHYROXINE SODIUM [Concomitant]
  4. PYRIDOXINE [Concomitant]
  5. FOLIC ACID [Concomitant]
  6. LANSOPRAZOLE [Concomitant]
  7. DARBEPOETIN ALFA [Concomitant]

REACTIONS (4)
  - LYMPHOMA [None]
  - OVARIAN CANCER METASTATIC [None]
  - PERITONITIS SCLEROSING [None]
  - STEM CELL TRANSPLANT [None]
